FAERS Safety Report 10056825 (Version 2)
Quarter: 2014Q2

REPORT INFORMATION
  Report Type: Spontaneous
  Country: US (occurrence: US)
  Receive Date: 20140403
  Receipt Date: 20140422
  Transmission Date: 20141212
  Serious: Yes (Hospitalization)
  Sender: FDA-Public Use
  Company Number: US-JNJFOC-20140316967

PATIENT
  Sex: 0

DRUGS (1)
  1. DURAGESIC [Suspect]
     Indication: PAIN
     Route: 062

REACTIONS (3)
  - Investigation [Unknown]
  - Inappropriate schedule of drug administration [Not Recovered/Not Resolved]
  - Physical product label issue [Unknown]
